FAERS Safety Report 20457688 (Version 2)
Quarter: 2022Q2

REPORT INFORMATION
  Report Type: Spontaneous
  Country: PL (occurrence: PL)
  Receive Date: 20220210
  Receipt Date: 20220415
  Transmission Date: 20220721
  Serious: Yes (Other)
  Sender: FDA-Public Use
  Company Number: PL-NOVARTISPH-NVSC2022PL027951

PATIENT
  Age: 0 Year
  Sex: Female
  Weight: 1.44 kg

DRUGS (17)
  1. AZITHROMYCIN [Suspect]
     Active Substance: AZITHROMYCIN
     Indication: Foetal exposure during pregnancy
     Dosage: UNKNOWN MATERNAL DOSE
     Route: 064
  2. FENTANYL [Suspect]
     Active Substance: FENTANYL
     Indication: Foetal exposure during pregnancy
     Dosage: UNKNOWN MATERNAL DOSE
     Route: 064
  3. PIPERACILLIN SODIUM\TAZOBACTAM SODIUM [Suspect]
     Active Substance: PIPERACILLIN SODIUM\TAZOBACTAM SODIUM
     Indication: Foetal exposure during pregnancy
     Dosage: UNKNOWN MATERNAL DOSE
     Route: 064
  4. MIDAZOLAM [Suspect]
     Active Substance: MIDAZOLAM
     Indication: Foetal exposure during pregnancy
     Dosage: UNKNOWN MATERNAL DOSE
     Route: 064
  5. VANCOMYCIN [Suspect]
     Active Substance: VANCOMYCIN
     Indication: Foetal exposure during pregnancy
     Dosage: UNKNOWN MATERNAL DOSE
     Route: 064
  6. DEXAMETHASONE [Suspect]
     Active Substance: DEXAMETHASONE
     Indication: Foetal exposure during pregnancy
     Dosage: UNKNOWN MATERNAL DOSE
     Route: 064
  7. PROPOFOL [Suspect]
     Active Substance: PROPOFOL
     Indication: Foetal exposure during pregnancy
     Dosage: UNKNOWN MATERNAL DOSE
     Route: 064
  8. NOREPINEPHRINE [Suspect]
     Active Substance: NOREPINEPHRINE
     Indication: Foetal exposure during pregnancy
     Dosage: UNKNOWN MATERNAL DOSE
     Route: 064
  9. FUROSEMIDE [Suspect]
     Active Substance: FUROSEMIDE
     Indication: Foetal exposure during pregnancy
     Dosage: MATERNAL DOSE: BOLUS
     Route: 064
  10. ASCORBIC ACID [Suspect]
     Active Substance: ASCORBIC ACID
     Indication: Foetal exposure during pregnancy
     Dosage: UNKNOWN MATERNAL DOSE
     Route: 064
  11. VITAMIN B1 [Suspect]
     Active Substance: THIAMINE HYDROCHLORIDE
     Indication: Foetal exposure during pregnancy
     Dosage: UNKNOWN MATERNAL DOSE
     Route: 064
  12. MANNITOL [Suspect]
     Active Substance: MANNITOL
     Indication: Foetal exposure during pregnancy
     Dosage: UNKNOWN MATERNAL DOSE
     Route: 064
  13. LACTULOSE [Suspect]
     Active Substance: LACTULOSE
     Indication: Foetal exposure during pregnancy
     Dosage: UNKNOWN MATERNAL DOSE
     Route: 064
  14. UNSPECIFIED INGREDIENT [Suspect]
     Active Substance: UNSPECIFIED INGREDIENT
     Indication: Foetal exposure during pregnancy
     Dosage: MATERNAL DOSE OF 40 MG
     Route: 064
  15. HEPARIN [Suspect]
     Active Substance: HEPARIN SODIUM
     Indication: Foetal exposure during pregnancy
     Dosage: MATERNAL DOSE OF 2500 UNITS IN NEBULIZATION 4 TIMES A DAY
     Route: 064
  16. SEVOFLURANE [Suspect]
     Active Substance: SEVOFLURANE
     Indication: Foetal exposure during pregnancy
     Dosage: UNKNOWN MATERNAL DOSE
     Route: 064
  17. MAGNESIUM SULFATE [Suspect]
     Active Substance: MAGNESIUM SULFATE
     Indication: Foetal exposure during pregnancy
     Dosage: UNKNOWN MATERNAL DOSE
     Route: 064

REACTIONS (3)
  - Premature baby [Unknown]
  - Low birth weight baby [Unknown]
  - Foetal exposure during pregnancy [Unknown]

NARRATIVE: CASE EVENT DATE: 20201013
